FAERS Safety Report 8054662-0 (Version None)
Quarter: 2012Q1

REPORT INFORMATION
  Report Type: 
  Country: None (occurrence: None)
  Receive Date: 20120119
  Receipt Date: 20120112
  Transmission Date: 20120608
  Serious: No
  Sender: FDA-Public Use
  Company Number: US-PFIZER INC-2012010351

PATIENT
  Sex: Male

DRUGS (2)
  1. BENADRYL [Suspect]
     Dosage: UNK
  2. PRISTIQ [Suspect]
     Dosage: 50 MG

REACTIONS (1)
  - INSOMNIA [None]
